FAERS Safety Report 7244434-9 (Version None)
Quarter: 2011Q1

REPORT INFORMATION
  Report Type: 
  Country: None (occurrence: None)
  Receive Date: 20110125
  Receipt Date: 20110117
  Transmission Date: 20110831
  Serious: Yes (Hospitalization, Other)
  Sender: FDA-Public Use
  Company Number: PHHY2009CA34047

PATIENT
  Sex: Male

DRUGS (4)
  1. ZOMETA [Suspect]
     Indication: PROSTATE CANCER METASTATIC
     Dosage: 3.3 MG EVERY 12 WEEKS
     Route: 042
     Dates: start: 20090806
  2. RAMIPRIL [Concomitant]
  3. ZOLADEX [Concomitant]
  4. BICALUTAMIDE [Concomitant]

REACTIONS (17)
  - BONE PAIN [None]
  - RED BLOOD CELL COUNT DECREASED [None]
  - BLOOD TESTOSTERONE DECREASED [None]
  - LYMPHOCYTE COUNT DECREASED [None]
  - WHITE BLOOD CELL COUNT DECREASED [None]
  - BLOOD CREATININE INCREASED [None]
  - PLATELET COUNT DECREASED [None]
  - HAEMOGLOBIN DECREASED [None]
  - BLOOD UREA INCREASED [None]
  - BLOOD PHOSPHORUS DECREASED [None]
  - GLOMERULAR FILTRATION RATE DECREASED [None]
  - BLOOD PRESSURE INCREASED [None]
  - PROSTATIC SPECIFIC ANTIGEN INCREASED [None]
  - MEAN CELL HAEMOGLOBIN CONCENTRATION DECREASED [None]
  - HEART RATE DECREASED [None]
  - NEUTROPENIA [None]
  - HAEMATOCRIT DECREASED [None]
